FAERS Safety Report 24081007 (Version 1)
Quarter: 2024Q3

REPORT INFORMATION
  Report Type: Spontaneous
  Country: US (occurrence: US)
  Receive Date: 20240711
  Receipt Date: 20240711
  Transmission Date: 20241016
  Serious: No
  Sender: BAYER
  Company Number: US-BAYER-2024A098580

PATIENT
  Age: 39 Year
  Sex: Female

DRUGS (3)
  1. REGORAFENIB [Suspect]
     Active Substance: REGORAFENIB
     Indication: Colorectal cancer metastatic
     Dosage: UNK
  2. REGORAFENIB [Suspect]
     Active Substance: REGORAFENIB
     Indication: Metastases to liver
  3. PEMBROLIZUMAB [Concomitant]
     Active Substance: PEMBROLIZUMAB

REACTIONS (2)
  - Drug eruption [Recovered/Resolved]
  - Pyrexia [None]
